FAERS Safety Report 16270960 (Version 1)
Quarter: 2019Q2

REPORT INFORMATION
  Report Type: Spontaneous
  Country: US (occurrence: US)
  Receive Date: 20190505
  Receipt Date: 20190505
  Transmission Date: 20190711
  Serious: Yes (Other)
  Sender: FDA-Public Use
  Company Number: US-JNJFOC-20190431569

PATIENT
  Sex: Female

DRUGS (1)
  1. TOPAMAX [Suspect]
     Active Substance: TOPIRAMATE
     Indication: MIGRAINE
     Route: 048
     Dates: start: 20170820

REACTIONS (5)
  - Amblyopia [Unknown]
  - Angle closure glaucoma [Unknown]
  - Astigmatism [Unknown]
  - Mydriasis [Unknown]
  - Hypermetropia [Unknown]

NARRATIVE: CASE EVENT DATE: 20170901
